FAERS Safety Report 5441215-3 (Version None)
Quarter: 2007Q3

REPORT INFORMATION
  Report Type: 
  Country: None (occurrence: None)
  Receive Date: 20070901
  Receipt Date: 20070822
  Transmission Date: 20080115
  Serious: Yes (Other)
  Sender: FDA-Public Use
  Company Number: CA-PFIZER INC-2007070451

PATIENT
  Sex: Female

DRUGS (2)
  1. LYRICA [Suspect]
     Route: 048
  2. ELAVIL [Suspect]
     Dosage: DAILY DOSE:10MG-FREQ:ONCE DAILY

REACTIONS (1)
  - ABORTION SPONTANEOUS [None]
